FAERS Safety Report 6420014-X (Version None)
Quarter: 2009Q4

REPORT INFORMATION
  Report Type: 
  Country: None (occurrence: None)
  Receive Date: 20091029
  Receipt Date: 20080926
  Transmission Date: 20100525
  Serious: No
  Sender: FDA-Public Use
  Company Number: A0749603A

PATIENT
  Sex: Female

DRUGS (3)
  1. IMITREX [Suspect]
     Route: 045
  2. IMITREX [Suspect]
     Route: 048
  3. DECONGESTANT [Suspect]

REACTIONS (2)
  - BLOOD PRESSURE INCREASED [None]
  - THERAPEUTIC RESPONSE DECREASED [None]
